FAERS Safety Report 22090581 (Version 1)
Quarter: 2023Q1

REPORT INFORMATION
  Report Type: Spontaneous
  Country: JP (occurrence: JP)
  Receive Date: 20230313
  Receipt Date: 20230313
  Transmission Date: 20230417
  Serious: Yes (Other)
  Sender: FDA-Public Use
  Company Number: JP-WOODWARD-2023-JP-000052

PATIENT
  Sex: Female

DRUGS (2)
  1. RABEPRAZOLE SODIUM [Suspect]
     Active Substance: RABEPRAZOLE SODIUM
     Indication: Angina unstable
     Route: 048
  2. ASPIRIN [Concomitant]
     Active Substance: ASPIRIN
     Route: 048

REACTIONS (2)
  - Adenocarcinoma gastric [Unknown]
  - Gastric polyps [Unknown]
